FAERS Safety Report 10779485 (Version 3)
Quarter: 2015Q1

REPORT INFORMATION
  Report Type: Spontaneous
  Country: IL (occurrence: IL)
  Receive Date: 20150210
  Receipt Date: 20150331
  Transmission Date: 20150721
  Serious: Yes (Hospitalization)
  Sender: FDA-Public Use
  Company Number: IL-BRISTOL-MYERS SQUIBB COMPANY-BMS-2015-003747

PATIENT
  Age: 75 Year
  Sex: Female

DRUGS (1)
  1. ELIQUIS [Suspect]
     Active Substance: APIXABAN
     Indication: CEREBROVASCULAR ACCIDENT PROPHYLAXIS
     Dosage: 5 MG, BID
     Route: 048
     Dates: start: 201406, end: 201501

REACTIONS (6)
  - Haematuria [Recovered/Resolved]
  - Pneumonia aspiration [Unknown]
  - Anaemia [Unknown]
  - Hypovolaemic shock [Unknown]
  - Gastrointestinal haemorrhage [Recovered/Resolved]
  - Abdominal pain [Unknown]
